FAERS Safety Report 15651787 (Version 2)
Quarter: 2018Q4

REPORT INFORMATION
  Report Type: Spontaneous
  Country: US (occurrence: US)
  Receive Date: 20181123
  Receipt Date: 20181226
  Transmission Date: 20190205
  Serious: Yes (Other)
  Sender: FDA-Public Use
  Company Number: US-ASTRAZENECA-2018SF52211

PATIENT
  Age: 20996 Day
  Sex: Male
  Weight: 99.3 kg

DRUGS (20)
  1. NEXIUM [Suspect]
     Active Substance: ESOMEPRAZOLE MAGNESIUM
     Dosage: 40 MG
     Route: 048
     Dates: start: 20120606
  2. GLIPIZIDE. [Concomitant]
     Active Substance: GLIPIZIDE
  3. RISPERDAL [Concomitant]
     Active Substance: RISPERIDONE
  4. CLONAZEPAM. [Concomitant]
     Active Substance: CLONAZEPAM
     Dates: start: 20120605
  5. LAMOTRIGINE. [Concomitant]
     Active Substance: LAMOTRIGINE
     Dates: start: 20120605
  6. TIAGABINE [Concomitant]
     Active Substance: TIAGABINE
  7. LISINOPRIL. [Concomitant]
     Active Substance: LISINOPRIL
     Dates: start: 20120605
  8. ALPRAZOLAM. [Concomitant]
     Active Substance: ALPRAZOLAM
  9. LOSARTAN. [Concomitant]
     Active Substance: LOSARTAN
  10. GABAPENTIN. [Concomitant]
     Active Substance: GABAPENTIN
     Dates: start: 20120605
  11. NEXIUM [Suspect]
     Active Substance: ESOMEPRAZOLE MAGNESIUM
     Route: 048
     Dates: start: 1998, end: 2013
  12. NAPROXEN. [Concomitant]
     Active Substance: NAPROXEN
     Dates: start: 20120607
  13. LYRICA [Concomitant]
     Active Substance: PREGABALIN
  14. DOVONEX [Concomitant]
     Active Substance: CALCIPOTRIENE
     Dates: start: 20120605
  15. METFORMIN [Concomitant]
     Active Substance: METFORMIN HYDROCHLORIDE
     Dates: start: 20121008
  16. MULTIVITAMINS [Concomitant]
     Active Substance: VITAMINS
  17. LAMICTAL [Concomitant]
     Active Substance: LAMOTRIGINE
  18. RISPERIDONE. [Concomitant]
     Active Substance: RISPERIDONE
     Dates: start: 20120703
  19. METFORMIN [Concomitant]
     Active Substance: METFORMIN HYDROCHLORIDE
     Dates: start: 20120712
  20. CALCIPOTRIENE. [Concomitant]
     Active Substance: CALCIPOTRIENE
     Dates: start: 20130801

REACTIONS (3)
  - Chronic kidney disease [Unknown]
  - Renal impairment [Unknown]
  - Renal failure [Unknown]

NARRATIVE: CASE EVENT DATE: 20160919
